FAERS Safety Report 19574193 (Version 24)
Quarter: 2024Q4

REPORT INFORMATION
  Report Type: Spontaneous
  Country: US (occurrence: US)
  Receive Date: 20210719
  Receipt Date: 20241220
  Transmission Date: 20250115
  Serious: Yes (Hospitalization, Other)
  Sender: RANBAXY
  Company Number: US-SUN PHARMACEUTICAL INDUSTRIES LTD-2021R1-296192

PATIENT
  Sex: Female
  Weight: 54.422 kg

DRUGS (27)
  1. EPOPROSTENOL [Suspect]
     Active Substance: EPOPROSTENOL
     Indication: Pulmonary arterial hypertension
     Dosage: 122 NG/KG/MIN, CONTINUOUS
     Route: 042
     Dates: start: 20210316
  2. EPOPROSTENOL [Suspect]
     Active Substance: EPOPROSTENOL
     Dosage: 122 NG/KG/MIN, CONTINUOUS
     Route: 042
     Dates: start: 20210316
  3. EPOPROSTENOL [Suspect]
     Active Substance: EPOPROSTENOL
     Dosage: 122 NG/KG/MIN CONTINUOUS
     Route: 042
     Dates: start: 20210316
  4. EPOPROSTENOL [Suspect]
     Active Substance: EPOPROSTENOL
     Dosage: 122 NG/KG/MIN, CONTINUOUS
     Route: 042
     Dates: start: 20210316
  5. EPOPROSTENOL [Suspect]
     Active Substance: EPOPROSTENOL
     Dosage: 122 NG/KG/MIN CONTINUOUS
     Route: 042
     Dates: start: 20210316
  6. EPOPROSTENOL [Suspect]
     Active Substance: EPOPROSTENOL
     Dosage: DOSE 122 NG/KG/MIN
     Route: 042
     Dates: start: 20210316
  7. EPOPROSTENOL [Suspect]
     Active Substance: EPOPROSTENOL
     Dosage: 122 NG/KG/MIN CONTINUOUS
     Route: 042
     Dates: start: 20210316
  8. EPOPROSTENOL [Suspect]
     Active Substance: EPOPROSTENOL
     Dosage: 122 NG/KG/MIN CONTINUOUS
     Route: 042
     Dates: start: 20210316
  9. EPOPROSTENOL [Suspect]
     Active Substance: EPOPROSTENOL
     Dosage: 122 NG/KG/MIN CONTINUOUS
     Route: 042
     Dates: start: 20210316
  10. EPOPROSTENOL [Suspect]
     Active Substance: EPOPROSTENOL
     Dosage: 122 NG/KG/MIN CONTINUOUS
     Route: 042
     Dates: start: 20210316
  11. EPOPROSTENOL [Suspect]
     Active Substance: EPOPROSTENOL
     Dosage: 122 NG/KG/MIN, CONTINUOUS
     Route: 042
     Dates: start: 20210316
  12. EPOPROSTENOL [Suspect]
     Active Substance: EPOPROSTENOL
     Dosage: 122 NG/KG/MIN, CONTINUOUS
     Route: 042
     Dates: start: 20210316
  13. EPOPROSTENOL [Suspect]
     Active Substance: EPOPROSTENOL
     Dosage: 122 NG/KG/MIN, CONTINUOUS
     Route: 042
     Dates: start: 20210316
  14. AMBRISENTAN [Concomitant]
     Active Substance: AMBRISENTAN
     Indication: Product used for unknown indication
     Dosage: UNK
     Route: 065
  15. ACETAMINOPHEN [Concomitant]
     Active Substance: ACETAMINOPHEN
     Indication: Product used for unknown indication
     Route: 065
  16. ARTIFICIAL TEARS [Concomitant]
     Indication: Product used for unknown indication
     Route: 065
  17. FLUBLOK QUAD [Concomitant]
     Indication: Product used for unknown indication
     Route: 065
  18. FLUOCINONIDE [Concomitant]
     Active Substance: FLUOCINONIDE
     Indication: Product used for unknown indication
     Route: 065
  19. LASIX [Concomitant]
     Active Substance: FUROSEMIDE
     Indication: Product used for unknown indication
     Route: 065
  20. LEVOTHYROXINE [Concomitant]
     Active Substance: LEVOTHYROXINE
     Indication: Product used for unknown indication
     Route: 065
  21. METAMUCIL [Concomitant]
     Active Substance: PLANTAGO SEED
     Indication: Product used for unknown indication
     Route: 065
  22. NORTRIPTYLINE HYDROCHLORIDE [Concomitant]
     Active Substance: NORTRIPTYLINE HYDROCHLORIDE
     Indication: Product used for unknown indication
     Route: 065
  23. OMEPRAZOLE [Concomitant]
     Active Substance: OMEPRAZOLE
     Indication: Product used for unknown indication
     Route: 065
  24. ONDANSETRON [Concomitant]
     Active Substance: ONDANSETRON
     Indication: Product used for unknown indication
     Route: 065
  25. POTASSIUM CHLORIDE [Concomitant]
     Active Substance: POTASSIUM CHLORIDE
     Indication: Product used for unknown indication
     Route: 065
  26. VITAMIN D3 [Concomitant]
     Active Substance: CHOLECALCIFEROL
     Indication: Product used for unknown indication
     Route: 065
  27. ZOLOFT [Concomitant]
     Active Substance: SERTRALINE HYDROCHLORIDE
     Indication: Product used for unknown indication
     Route: 065

REACTIONS (22)
  - Liver disorder [Unknown]
  - Thyroid disorder [Unknown]
  - Sepsis [Unknown]
  - Infection [Unknown]
  - Gastrointestinal haemorrhage [Unknown]
  - Pain [Unknown]
  - Clostridium difficile infection [Unknown]
  - Osteoporosis [Unknown]
  - Malaise [Unknown]
  - Pain in jaw [Unknown]
  - Diarrhoea [Unknown]
  - Abdominal discomfort [Unknown]
  - Headache [Unknown]
  - Nausea [Unknown]
  - Flushing [Unknown]
  - Pain in extremity [Unknown]
  - Nasopharyngitis [Unknown]
  - Device occlusion [Unknown]
  - Complication associated with device [Unknown]
  - Vomiting [Unknown]
  - Hepatic pain [Unknown]
  - Psoriasis [Not Recovered/Not Resolved]
